FAERS Safety Report 15985141 (Version 1)
Quarter: 2019Q1

REPORT INFORMATION
  Report Type: Spontaneous
  Country: US (occurrence: US)
  Receive Date: 20190220
  Receipt Date: 20190220
  Transmission Date: 20190418
  Serious: No
  Sender: FDA-Public Use
  Company Number: US-BAYER-2019-035725

PATIENT
  Age: 59 Year
  Sex: Female
  Weight: 75 kg

DRUGS (1)
  1. MIRALAX [Suspect]
     Active Substance: POLYETHYLENE GLYCOL 3350
     Dosage: UNK
     Route: 048
     Dates: start: 201711

REACTIONS (5)
  - Product odour abnormal [Unknown]
  - Malaise [Unknown]
  - Incorrect dose administered [Unknown]
  - Product taste abnormal [Unknown]
  - Poor quality product administered [Unknown]
